FAERS Safety Report 23994874 (Version 1)
Quarter: 2024Q2

REPORT INFORMATION
  Report Type: Spontaneous
  Country: US (occurrence: US)
  Receive Date: 20240620
  Receipt Date: 20240620
  Transmission Date: 20240716
  Serious: Yes (Hospitalization, Other)
  Sender: FDA-Public Use
  Company Number: US-PFIZER INC-202400195294

PATIENT
  Age: 8 Year
  Sex: Female

DRUGS (1)
  1. OXBRYTA [Suspect]
     Active Substance: VOXELOTOR
     Indication: Sickle cell disease
     Dosage: THREE TABLETS ONCE A DAY WITH WATER IN 15 OUNCES AND LET IT DISSOLVE
     Dates: start: 2023

REACTIONS (2)
  - Sickle cell anaemia with crisis [Not Recovered/Not Resolved]
  - Pneumonia [Not Recovered/Not Resolved]

NARRATIVE: CASE EVENT DATE: 20240610
